FAERS Safety Report 4679952-0 (Version None)
Quarter: 2005Q2

REPORT INFORMATION
  Report Type: 
  Country: None (occurrence: None)
  Receive Date: 20050531
  Receipt Date: 20050519
  Transmission Date: 20051028
  Serious: Yes (Death)
  Sender: FDA-Public Use
  Company Number: B0382241A

PATIENT
  Age: 85 Year
  Sex: Female
  Weight: 61.8706 kg

DRUGS (11)
  1. AUGMENTIN '125' [Suspect]
     Indication: OPEN WOUND
     Dosage: ORAL
     Route: 048
     Dates: start: 20050329
  2. FLUINDIONE              (FLUINDIONE) [Suspect]
     Dosage: ORAL
     Route: 048
  3. PARACETAMOL [Concomitant]
  4. FRUSEMIDE [Concomitant]
  5. FLUVASTATIN SODIUM [Concomitant]
  6. POTASSIUM CHLORIDE [Concomitant]
  7. CACIT [Concomitant]
  8. OMEPRAZOLE [Concomitant]
  9. EXPREX [Concomitant]
  10. BUFLOMEDIL HYDROCHLORIDE [Concomitant]
  11. HYDROCORTISONE [Concomitant]

REACTIONS (8)
  - ANAEMIA [None]
  - BLOOD PRESSURE INCREASED [None]
  - CEREBRAL HAEMORRHAGE [None]
  - ECCHYMOSIS [None]
  - HEART RATE INCREASED [None]
  - LUNG CREPITATION [None]
  - RIGHT VENTRICULAR FAILURE [None]
  - SUBDURAL HAEMATOMA [None]
